FAERS Safety Report 19222911 (Version 4)
Quarter: 2022Q3

REPORT INFORMATION
  Report Type: Report from Study
  Country: US (occurrence: None)
  Receive Date: 20210505
  Receipt Date: 20220726
  Transmission Date: 20221026
  Serious: Yes (Hospitalization)
  Sender: FDA-Public Use
  Company Number: TN-ROCHE-2141426

PATIENT
  Age: 53 Year
  Sex: Female
  Weight: 76.6 kg

DRUGS (55)
  1. ATEZOLIZUMAB [Suspect]
     Active Substance: ATEZOLIZUMAB
     Indication: Ovarian cancer
     Dosage: DATE OF MOST RECENT DOSE OF ATEZOLIZUMAB PRIOR TO THE ONSET OF FEVER: 24/MAY/2018
     Route: 041
     Dates: start: 20180412
  2. BEVACIZUMAB [Suspect]
     Active Substance: BEVACIZUMAB
     Indication: Ovarian cancer
     Dosage: DATE OF MOST RECENT DOSE OF BEVACIZUMAB PRIOR TO THE ONSET OF FEVER: 24/MAY/2018 (1100 MG)?(15 MG/KG
     Route: 042
     Dates: start: 20180524
  3. PACLITAXEL [Suspect]
     Active Substance: PACLITAXEL
     Indication: Ovarian cancer
     Dosage: DATE OF MOST RECENT DOSE OF PACLITAXEL (316.7 MG) PRIOR TO TO AE ONSET: 24/MAY/2018?(175 MG/M2, AS P
     Route: 042
     Dates: start: 20180412
  4. CARBOPLATIN [Suspect]
     Active Substance: CARBOPLATIN
     Indication: Ovarian cancer
     Dosage: DATE OF MOST RECENT DOSE OF CARBOPLATIN (795.3 MG) PRIOR TO AE ONSET: 24/MAY/2018?(AREA UNDER THE CO
     Route: 042
     Dates: start: 20180412
  5. HEPARIN [Concomitant]
     Active Substance: HEPARIN SODIUM
     Dosage: 100 UNIT/ML, 500 UNITS INJECTION
     Route: 065
     Dates: start: 20180607, end: 20180607
  6. MUCINEX [Concomitant]
     Active Substance: GUAIFENESIN
     Route: 065
     Dates: start: 20180606, end: 20180607
  7. POTASSIUM CHLORIDE [Concomitant]
     Active Substance: POTASSIUM CHLORIDE
     Route: 065
     Dates: start: 20180606, end: 20180606
  8. ZOVIRAX [Concomitant]
     Active Substance: ACYCLOVIR
     Route: 065
     Dates: start: 20180606, end: 20180607
  9. TYLENOL [Concomitant]
     Active Substance: ACETAMINOPHEN
     Indication: Procedural pain
     Dates: start: 20180605, end: 20180607
  10. TYLENOL [Concomitant]
     Active Substance: ACETAMINOPHEN
     Dates: start: 20180605, end: 20180605
  11. TYLENOL [Concomitant]
     Active Substance: ACETAMINOPHEN
     Dates: start: 20180603, end: 20180603
  12. TYLENOL [Concomitant]
     Active Substance: ACETAMINOPHEN
     Dates: start: 20180302
  13. MOTRIN [Concomitant]
     Active Substance: IBUPROFEN
     Route: 065
     Dates: start: 20180604, end: 20180607
  14. SODIUM CHLORIDE [Concomitant]
     Active Substance: SODIUM CHLORIDE
     Dosage: 0.9% 250 ML
     Route: 040
     Dates: start: 20180604, end: 20180604
  15. SODIUM CHLORIDE [Concomitant]
     Active Substance: SODIUM CHLORIDE
     Route: 040
     Dates: start: 20180604, end: 20180604
  16. SODIUM CHLORIDE [Concomitant]
     Active Substance: SODIUM CHLORIDE
     Dosage: 0.9% 1000 ML
     Route: 040
     Dates: start: 20180603, end: 20180604
  17. VANCOCIN [Concomitant]
     Active Substance: VANCOMYCIN HYDROCHLORIDE
     Dosage: 1.25 G IN D5W 250ML
     Route: 065
     Dates: start: 20180604, end: 20180607
  18. VANCOCIN [Concomitant]
     Active Substance: VANCOMYCIN HYDROCHLORIDE
     Dosage: 1.5 G IN D5W 250ML
     Route: 065
     Dates: start: 20180607, end: 20180607
  19. BISMATROL [Concomitant]
     Active Substance: BISMUTH SUBSALICYLATE
     Dosage: 262 MG/15 ML
     Route: 065
     Dates: start: 20180604, end: 20180607
  20. BISMATROL [Concomitant]
     Active Substance: BISMUTH SUBSALICYLATE
     Dosage: 262 MG/15 ML
     Route: 065
     Dates: start: 20180604, end: 20180604
  21. LOVENOX [Concomitant]
     Active Substance: ENOXAPARIN SODIUM
     Indication: Anticoagulant therapy
     Route: 065
     Dates: start: 20180604, end: 20180606
  22. LOVENOX [Concomitant]
     Active Substance: ENOXAPARIN SODIUM
     Dates: start: 20180603, end: 20180607
  23. ZOFRAN [Concomitant]
     Active Substance: ONDANSETRON HYDROCHLORIDE
     Indication: Chemotherapy side effect prophylaxis
     Dates: start: 20180604, end: 20180607
  24. ZOFRAN [Concomitant]
     Active Substance: ONDANSETRON HYDROCHLORIDE
     Dates: start: 20180604, end: 20180607
  25. ZOFRAN [Concomitant]
     Active Substance: ONDANSETRON HYDROCHLORIDE
     Dates: start: 20180412
  26. ZOFRAN [Concomitant]
     Active Substance: ONDANSETRON HYDROCHLORIDE
     Dates: start: 20180524, end: 20180524
  27. COLACE [Concomitant]
     Active Substance: DOCUSATE SODIUM
     Indication: Constipation
     Route: 065
     Dates: start: 20180604, end: 20180607
  28. COLACE [Concomitant]
     Active Substance: DOCUSATE SODIUM
     Dates: start: 20180302
  29. MAGNESIUM HYDROXIDE [Concomitant]
     Active Substance: MAGNESIUM HYDROXIDE
     Dosage: 400 MG/5 ML, 30 ML
     Route: 065
     Dates: start: 20180604, end: 20180607
  30. ASPIRIN [Concomitant]
     Active Substance: ASPIRIN
     Indication: Anticoagulant therapy
     Route: 065
     Dates: start: 20180604, end: 20180607
  31. ASPIRIN [Concomitant]
     Active Substance: ASPIRIN
     Dates: start: 20180603, end: 20180607
  32. ASPIRIN [Concomitant]
     Active Substance: ASPIRIN
     Dates: start: 20180325
  33. COMPAZINE [Concomitant]
     Active Substance: PROCHLORPERAZINE MALEATE
     Indication: Chemotherapy
     Route: 065
     Dates: start: 20180604, end: 20180607
  34. COMPAZINE [Concomitant]
     Active Substance: PROCHLORPERAZINE MALEATE
     Indication: Nausea
     Dates: start: 20180412
  35. COMPAZINE [Concomitant]
     Active Substance: PROCHLORPERAZINE MALEATE
     Dates: start: 20180414
  36. CLARITIN [Concomitant]
     Active Substance: LORATADINE
     Indication: Seasonal allergy
     Route: 065
     Dates: start: 20180604, end: 20180607
  37. CLARITIN [Concomitant]
     Active Substance: LORATADINE
     Dates: start: 20180430
  38. REQUIP [Concomitant]
     Active Substance: ROPINIROLE HYDROCHLORIDE
     Dosage: AT BEDTIME
     Route: 065
     Dates: start: 20180604, end: 20180607
  39. FAMOTIDINE [Concomitant]
     Active Substance: FAMOTIDINE
     Route: 065
     Dates: start: 20180604, end: 20180607
  40. FLEXERIL [Concomitant]
     Active Substance: CYCLOBENZAPRINE HYDROCHLORIDE
     Indication: Back pain
     Dates: start: 2002
  41. IBUPROFEN [Concomitant]
     Active Substance: IBUPROFEN
     Indication: Procedural pain
     Dates: start: 20180302
  42. BENADRYL [Concomitant]
     Active Substance: DIPHENHYDRAMINE HYDROCHLORIDE
     Indication: Chemotherapy side effect prophylaxis
     Dates: start: 20180412
  43. BENADRYL [Concomitant]
     Active Substance: DIPHENHYDRAMINE HYDROCHLORIDE
     Route: 042
     Dates: start: 20180524, end: 20180524
  44. DECADRON [Concomitant]
     Active Substance: DEXAMETHASONE
     Indication: Chemotherapy side effect prophylaxis
     Route: 042
     Dates: start: 20180412
  45. DECADRON [Concomitant]
     Active Substance: DEXAMETHASONE
     Route: 048
     Dates: start: 20180524, end: 20180524
  46. PEPCID [Concomitant]
     Active Substance: FAMOTIDINE
     Indication: Chemotherapy side effect prophylaxis
     Dates: start: 20180412
  47. PEPCID [Concomitant]
     Active Substance: FAMOTIDINE
     Dates: start: 20180524, end: 20180524
  48. OXYCODONE [Concomitant]
     Active Substance: OXYCODONE
     Indication: Abdominal pain
     Dates: start: 20180302
  49. ROPINIROLE [Concomitant]
     Active Substance: ROPINIROLE
     Indication: Restless legs syndrome
     Dates: start: 20180302
  50. VALACYCLOVIR [Concomitant]
     Active Substance: VALACYCLOVIR HYDROCHLORIDE
     Indication: Oral herpes
  51. PEPTO-BISMOL [Concomitant]
     Active Substance: BISMUTH SUBSALICYLATE
     Indication: Gastrooesophageal reflux disease
     Dates: start: 20180302
  52. CIPROFLOXACIN [Concomitant]
     Active Substance: CIPROFLOXACIN
     Indication: Neutropenia
     Dates: start: 20180427, end: 20180507
  53. DICLOXACILLIN [Concomitant]
     Active Substance: DICLOXACILLIN
     Indication: Neutropenia
     Dates: start: 20180427, end: 20180507
  54. DICLOXACILLIN [Concomitant]
     Active Substance: DICLOXACILLIN
     Indication: Infection prophylaxis
  55. BACTROBAN [Concomitant]
     Active Substance: MUPIROCIN\MUPIROCIN CALCIUM
     Indication: Epistaxis
     Dates: start: 20180103

REACTIONS (2)
  - Pyrexia [Recovered/Resolved]
  - Pyrexia [Recovered/Resolved]

NARRATIVE: CASE EVENT DATE: 20180603
